FAERS Safety Report 5736061-7 (Version None)
Quarter: 2008Q2

REPORT INFORMATION
  Report Type: 
  Country: None (occurrence: None)
  Receive Date: 20080513
  Receipt Date: 20080502
  Transmission Date: 20081010
  Serious: Yes (Other)
  Sender: FDA-Public Use
  Company Number: AU-ROCHE-562328

PATIENT
  Age: 36 Year
  Sex: Female

DRUGS (4)
  1. MYCOPHENOLATE MOFETIL [Suspect]
     Route: 065
  2. AZATHIOPRINE [Suspect]
     Indication: DRUG USE FOR UNKNOWN INDICATION
     Route: 065
  3. CYCLOSPORINE [Suspect]
     Indication: DRUG USE FOR UNKNOWN INDICATION
     Route: 065
  4. PREDNISOLONE [Suspect]
     Indication: DRUG USE FOR UNKNOWN INDICATION
     Route: 048

REACTIONS (8)
  - BLOOD CREATININE INCREASED [None]
  - CHRONIC ALLOGRAFT NEPHROPATHY [None]
  - DEEP VEIN THROMBOSIS [None]
  - FOCAL GLOMERULOSCLEROSIS [None]
  - NEPHRITIS INTERSTITIAL [None]
  - NEPHROGENIC SYSTEMIC FIBROSIS [None]
  - NEPHROPATHY TOXIC [None]
  - RASH PAPULAR [None]
